FAERS Safety Report 9168010 (Version 5)
Quarter: 2014Q1

REPORT INFORMATION
  Report Type: Spontaneous
  Country: CA (occurrence: CA)
  Receive Date: 20130318
  Receipt Date: 20140327
  Transmission Date: 20141002
  Serious: Yes (Other)
  Sender: FDA-Public Use
  Company Number: CA-AMGEN-CANSP2013016955

PATIENT
  Age: 72 Year
  Sex: Female

DRUGS (5)
  1. ENBREL [Suspect]
     Indication: RHEUMATOID ARTHRITIS
     Dosage: 50 MG, UNK
     Route: 065
     Dates: start: 20061014
  2. TRAMADOL [Suspect]
     Indication: PRODUCT USED FOR UNKNOWN INDICATION
     Dosage: UNK
     Route: 065
  3. PREDNISONE [Concomitant]
     Dosage: UNK
  4. TYLENOL                            /00020001/ [Concomitant]
     Dosage: UNK
  5. DEMEROL [Concomitant]
     Dosage: UNK

REACTIONS (21)
  - Burning sensation [Not Recovered/Not Resolved]
  - Oedema peripheral [Not Recovered/Not Resolved]
  - Skin haemorrhage [Unknown]
  - Abscess drainage [Not Recovered/Not Resolved]
  - Skin disorder [Not Recovered/Not Resolved]
  - Nodule [Unknown]
  - Haematochezia [Not Recovered/Not Resolved]
  - Rheumatoid arthritis [Unknown]
  - Localised infection [Not Recovered/Not Resolved]
  - Oropharyngeal pain [Unknown]
  - Arthralgia [Unknown]
  - Dry mouth [Unknown]
  - Stomatitis [Unknown]
  - Diarrhoea [Not Recovered/Not Resolved]
  - Pain of skin [Not Recovered/Not Resolved]
  - Skin irritation [Not Recovered/Not Resolved]
  - Painful defaecation [Not Recovered/Not Resolved]
  - Feeling abnormal [Not Recovered/Not Resolved]
  - Somnolence [Unknown]
  - Local swelling [Unknown]
  - Musculoskeletal disorder [Unknown]
